FAERS Safety Report 19673793 (Version 1)
Quarter: 2021Q3

REPORT INFORMATION
  Report Type: Spontaneous
  Country: US (occurrence: US)
  Receive Date: 20210808
  Receipt Date: 20210808
  Transmission Date: 20211014
  Serious: No
  Sender: FDA-Public Use
  Company Number: None

PATIENT
  Age: 34 Year
  Sex: Male
  Weight: 67.5 kg

DRUGS (4)
  1. FERRITIN [Concomitant]
     Active Substance: FERRITIN
  2. MODAFINIL. [Concomitant]
     Active Substance: MODAFINIL
  3. DAYVIGO [Suspect]
     Active Substance: LEMBOREXANT
     Indication: INSOMNIA
     Dosage: ?          QUANTITY:30 TABLET(S);?
     Route: 048
     Dates: start: 20210522, end: 20210806
  4. VITAMIN D [Concomitant]
     Active Substance: VITAMIN D NOS

REACTIONS (2)
  - Sexual dysfunction [None]
  - Mental disorder [None]

NARRATIVE: CASE EVENT DATE: 20210804
